FAERS Safety Report 5753796-0 (Version None)
Quarter: 2008Q2

REPORT INFORMATION
  Report Type: 
  Country: None (occurrence: None)
  Receive Date: 20080527
  Receipt Date: 20080513
  Transmission Date: 20081010
  Serious: Yes (Death)
  Sender: FDA-Public Use
  Company Number: GXKR2008SG04451

PATIENT
  Age: 57 Year
  Sex: Female

DRUGS (2)
  1. PREDNISOLONE [Suspect]
     Dosage: 8 MG, QD; ORAL
     Route: 048
  2. CYCLOSPORINE [Suspect]
     Indication: DRUG USE FOR UNKNOWN INDICATION
     Dosage: 50 MG, BID; ORAL
     Route: 048

REACTIONS (6)
  - BONE MARROW FAILURE [None]
  - EPSTEIN-BARR VIRUS ANTIBODY NEGATIVE [None]
  - HEPATIC ENZYME INCREASED [None]
  - POST TRANSPLANT LYMPHOPROLIFERATIVE DISORDER [None]
  - SKIN NECROSIS [None]
  - STAPHYLOCOCCAL SEPSIS [None]
